FAERS Safety Report 5758744-5 (Version None)
Quarter: 2008Q2

REPORT INFORMATION
  Report Type: 
  Country: None (occurrence: None)
  Receive Date: 20080604
  Receipt Date: 20080523
  Transmission Date: 20081010
  Serious: Yes (Hospitalization)
  Sender: FDA-Public Use
  Company Number: LU-GENENTECH-261879

PATIENT
  Sex: Female

DRUGS (1)
  1. MABTHERA [Suspect]
     Indication: RHEUMATOID ARTHRITIS
     Dosage: UNK, UNK
     Route: 042
     Dates: start: 20080501, end: 20080501

REACTIONS (1)
  - MYOCARDIAL INFARCTION [None]
